FAERS Safety Report 11345143 (Version 2)
Quarter: 2015Q3

REPORT INFORMATION
  Report Type: Spontaneous
  Country: IT (occurrence: IT)
  Receive Date: 20150806
  Receipt Date: 20150826
  Transmission Date: 20151125
  Serious: Yes (Hospitalization)
  Sender: FDA-Public Use
  Company Number: IT-009507513-1507ITA013250

PATIENT
  Age: 52 Year
  Sex: Male
  Weight: 80 kg

DRUGS (2)
  1. FLUCONAZOLE. [Suspect]
     Active Substance: FLUCONAZOLE
     Indication: SKIN CANDIDA
     Dosage: 400MG, QD
     Route: 042
     Dates: start: 20150715, end: 20150717
  2. INVANZ [Suspect]
     Active Substance: ERTAPENEM SODIUM
     Indication: SKIN CANDIDA
     Dosage: 1 G, QD
     Route: 042
     Dates: start: 20150715, end: 20150717

REACTIONS (1)
  - Toxic epidermal necrolysis [Recovering/Resolving]

NARRATIVE: CASE EVENT DATE: 20150717
